FAERS Safety Report 8544840-6 (Version None)
Quarter: 2012Q3

REPORT INFORMATION
  Report Type: 
  Country: None (occurrence: None)
  Receive Date: 20120727
  Receipt Date: 20120720
  Transmission Date: 20120928
  Serious: Yes (Other)
  Sender: FDA-Public Use
  Company Number: US-JNJFOC-20120711540

PATIENT
  Age: 55 Year
  Sex: Male
  Weight: 171.91 kg

DRUGS (5)
  1. ZYRTEC [Suspect]
     Indication: DERMATITIS CONTACT
     Route: 048
  2. APPLE CIDER VINEGAR (DIETARY SUPPLEMENT) [Concomitant]
     Indication: ROUTINE HEALTH MAINTENANCE
     Dosage: 2 TABLESPOONS
     Route: 065
  3. PROVENTIL [Concomitant]
     Indication: ASTHMA
     Dosage: EVERY 4-5 HOURS
     Route: 065
  4. STEROIDS NOS [Concomitant]
     Indication: ASTHMA
     Route: 065
  5. ZYRTEC [Suspect]
     Route: 048

REACTIONS (4)
  - HAEMATOCHEZIA [None]
  - DYSPNOEA [None]
  - DYSPEPSIA [None]
  - OFF LABEL USE [None]
